FAERS Safety Report 10728010 (Version 1)
Quarter: 2015Q1

REPORT INFORMATION
  Report Type: Spontaneous
  Country: US (occurrence: US)
  Receive Date: 20150121
  Receipt Date: 20150121
  Transmission Date: 20150721
  Serious: Yes (Hospitalization, Other)
  Sender: FDA-Public Use
  Company Number: US-GLAXOSMITHKLINE-US2014GSK047676

PATIENT
  Age: 87 Year
  Sex: Female

DRUGS (14)
  1. CENTRUM CARDIO [Concomitant]
     Active Substance: VITAMINS
  2. LASIX [Concomitant]
     Active Substance: FUROSEMIDE
  3. HYDROXYUREA. [Concomitant]
     Active Substance: HYDROXYUREA
  4. COREG CR [Suspect]
     Active Substance: CARVEDILOL PHOSPHATE
     Dosage: 40 MG, QD
     Dates: start: 20140815
  5. ALDACTONE [Concomitant]
     Active Substance: SPIRONOLACTONE
  6. IMDUR [Concomitant]
     Active Substance: ISOSORBIDE MONONITRATE
  7. VITAMIN C [Concomitant]
     Active Substance: ASCORBIC ACID
  8. COREG CR [Suspect]
     Active Substance: CARVEDILOL PHOSPHATE
     Indication: CARDIAC FAILURE CONGESTIVE
     Dosage: 80 MG
     Route: 048
     Dates: start: 200711
  9. OMEGA FISH OIL [Concomitant]
     Active Substance: FISH OIL\OMEGA-3 FATTY ACIDS
  10. VITAMIN E [Concomitant]
     Active Substance: .ALPHA.-TOCOPHEROL
  11. ASPIRIN. [Concomitant]
     Active Substance: ASPIRIN
  12. LOSARTIN [Concomitant]
     Active Substance: LOSARTAN
  13. LOVASTATIN. [Concomitant]
     Active Substance: LOVASTATIN
  14. WARFARIN [Concomitant]
     Active Substance: WARFARIN

REACTIONS (7)
  - Arrhythmia [Not Recovered/Not Resolved]
  - Fatigue [Not Recovered/Not Resolved]
  - Neoplasm malignant [Not Recovered/Not Resolved]
  - Malaise [Not Recovered/Not Resolved]
  - Cataract operation [Unknown]
  - Blood test abnormal [Not Recovered/Not Resolved]
  - Dyspnoea [Unknown]

NARRATIVE: CASE EVENT DATE: 2014
